FAERS Safety Report 9410643 (Version 1)
Quarter: 2013Q3

REPORT INFORMATION
  Report Type: Other
  Country: GB (occurrence: GB)
  Receive Date: 20130719
  Receipt Date: 20130719
  Transmission Date: 20140515
  Serious: Yes (Other)
  Sender: FDA-Public Use
  Company Number: GB-PERRIGO-13GB007392

PATIENT
  Age: 60 Year
  Sex: Female
  Weight: 77.5 kg

DRUGS (1)
  1. IBUPROFEN 16028/0013 200 MG [Suspect]
     Indication: PRODUCT USED FOR UNKNOWN INDICATION
     Dosage: UNK
     Route: 065

REACTIONS (1)
  - Gastrointestinal haemorrhage [Unknown]
